FAERS Safety Report 6713696-6 (Version None)
Quarter: 2010Q2

REPORT INFORMATION
  Report Type: 
  Country: None (occurrence: None)
  Receive Date: 20100506
  Receipt Date: 20100426
  Transmission Date: 20101027
  Serious: Yes (Hospitalization)
  Sender: FDA-Public Use
  Company Number: FR-PFIZER INC-2010052006

PATIENT
  Age: 69 Year
  Sex: Female

DRUGS (4)
  1. TAHOR [Suspect]
     Indication: DYSLIPIDAEMIA
     Dosage: UNK
     Route: 048
     Dates: start: 19990101, end: 20070401
  2. LIPANTHYL [Suspect]
     Indication: DYSLIPIDAEMIA
     Dosage: UNK
     Route: 048
     Dates: end: 19990101
  3. CRESTOR [Suspect]
     Dosage: UNK
     Route: 048
     Dates: start: 20070401, end: 20080301
  4. EZETROL [Suspect]
     Indication: DYSLIPIDAEMIA
     Dosage: 10 MG, UNK
     Route: 048
     Dates: start: 20080501, end: 20100301

REACTIONS (3)
  - GAIT DISTURBANCE [None]
  - MYALGIA [None]
  - PERIPHERAL SENSORY NEUROPATHY [None]
